FAERS Safety Report 4524976-7 (Version None)
Quarter: 2004Q4

REPORT INFORMATION
  Report Type: 
  Country: None (occurrence: None)
  Receive Date: 20041213
  Receipt Date: 20041201
  Transmission Date: 20050328
  Serious: Yes (Hospitalization)
  Sender: FDA-Public Use
  Company Number: FRWYE248401DEC04

PATIENT
  Sex: Female

DRUGS (2)
  1. ENBREL [Suspect]
     Indication: ANKYLOSING SPONDYLITIS
     Dosage: UNKNOWN
     Route: 058
     Dates: start: 20041101
  2. TRAMADOL HCL [Concomitant]
     Dosage: UNKNOWN
     Route: 048
     Dates: start: 20030101

REACTIONS (2)
  - VERTIGO [None]
  - VOMITING [None]
